FAERS Safety Report 8461831-4 (Version None)
Quarter: 2012Q2

REPORT INFORMATION
  Report Type: 
  Country: None (occurrence: None)
  Receive Date: 20120625
  Receipt Date: 20120619
  Transmission Date: 20120825
  Serious: Yes (Other)
  Sender: FDA-Public Use
  Company Number: BR-SANOFI-AVENTIS-2012SA043919

PATIENT
  Age: 49 Year
  Sex: Female

DRUGS (8)
  1. ROSUVASTATIN [Suspect]
     Indication: DIABETES MELLITUS
     Route: 048
     Dates: start: 20100601
  2. METFORMIN HCL [Interacting]
     Indication: DIABETES MELLITUS
     Route: 048
     Dates: start: 20070101
  3. PROBIOTICA [Interacting]
     Route: 065
     Dates: start: 20120604, end: 20120605
  4. SOMALGIN [Concomitant]
     Indication: VENOUS OCCLUSION
     Route: 048
  5. GLUCOSAMINE [Concomitant]
     Dosage: 1 SACHET A DAY
     Route: 048
  6. GLIMEPIRIDE [Interacting]
     Indication: DIABETES MELLITUS
     Route: 048
     Dates: start: 20070101
  7. CLOPIDOGREL BISULFATE [Suspect]
     Indication: VENOUS OCCLUSION
     Route: 048
     Dates: start: 20100601
  8. RAMIPRIL [Suspect]
     Indication: VENOUS OCCLUSION
     Route: 048
     Dates: start: 20100601

REACTIONS (6)
  - ARTHRITIS [None]
  - VENOUS OCCLUSION [None]
  - DIARRHOEA [None]
  - ABDOMINAL PAIN [None]
  - DRUG INTERACTION [None]
  - MEDICATION RESIDUE [None]
